FAERS Safety Report 23177902 (Version 1)
Quarter: 2023Q4

REPORT INFORMATION
  Report Type: Spontaneous
  Country: US (occurrence: None)
  Receive Date: 20231112
  Receipt Date: 20231112
  Transmission Date: 20240110
  Serious: Yes (Life-Threatening, Disabling)
  Sender: FDA-Public Use
  Company Number: None

PATIENT
  Age: 72 Year
  Sex: Male
  Weight: 58.5 kg

DRUGS (14)
  1. GUANFACINE [Suspect]
     Active Substance: GUANFACINE
     Indication: Hypertension
     Dosage: OTHER QUANTITY : 30 TABLET(S);?FREQUENCY : DAILY;?
     Route: 048
     Dates: start: 20230628, end: 20230704
  2. ARMOUR THYROID [Concomitant]
     Active Substance: THYROID, PORCINE
  3. testosterone CYPRONATE [Concomitant]
  4. OMNITROPE [Concomitant]
     Active Substance: SOMATROPIN
  5. ALBUTEROL [Concomitant]
     Active Substance: ALBUTEROL
  6. EPINEPHRINE [Concomitant]
     Active Substance: EPINEPHRINE
  7. VALIUM [Concomitant]
     Active Substance: DIAZEPAM
  8. XANAX [Concomitant]
     Active Substance: ALPRAZOLAM
  9. METHYLPHENIDATE [Concomitant]
     Active Substance: METHYLPHENIDATE
  10. RETIN-A [Concomitant]
     Active Substance: TRETINOIN
  11. VITAMINS [Concomitant]
     Active Substance: VITAMINS
  12. VITAMIN D NOS [Concomitant]
     Active Substance: VITAMIN D NOS
  13. MAGNESIUM [Concomitant]
     Active Substance: MAGNESIUM
  14. VITAMIN C [Concomitant]
     Active Substance: ASCORBIC ACID

REACTIONS (10)
  - Dyspnoea [None]
  - Pulmonary congestion [None]
  - Oxygen saturation decreased [None]
  - Paraesthesia [None]
  - Hypoaesthesia [None]
  - Cognitive disorder [None]
  - Anger [None]
  - Blood glucose decreased [None]
  - Disability [None]
  - Product use complaint [None]

NARRATIVE: CASE EVENT DATE: 20230628
